FAERS Safety Report 18443031 (Version 1)
Quarter: 2020Q4

REPORT INFORMATION
  Report Type: Report from Study
  Country: AR (occurrence: AR)
  Receive Date: 20201029
  Receipt Date: 20201029
  Transmission Date: 20210114
  Serious: Yes (Other)
  Sender: FDA-Public Use
  Company Number: NVSC2020AR287679

PATIENT
  Age: 38 Year
  Sex: Female

DRUGS (2)
  1. LETROZOLE. [Suspect]
     Active Substance: LETROZOLE
     Indication: PRODUCT USED FOR UNKNOWN INDICATION
     Dosage: UNK (APPROXIMATELY 1 MONTH AGO)
     Route: 065
  2. KISQALI [Suspect]
     Active Substance: RIBOCICLIB
     Indication: BREAST CANCER METASTATIC
     Dosage: 600 MG, QD (STOP DATE: APPROXIMATELY 1 MONTH AGO)
     Route: 048
     Dates: start: 20190713

REACTIONS (5)
  - Dizziness [Unknown]
  - Pain [Unknown]
  - Decreased appetite [Unknown]
  - Delirium [Unknown]
  - Prosopagnosia [Unknown]

NARRATIVE: CASE EVENT DATE: 20201001
